FAERS Safety Report 5220106-7 (Version None)
Quarter: 2007Q1

REPORT INFORMATION
  Report Type: 
  Country: None (occurrence: None)
  Receive Date: 20070124
  Receipt Date: 20070124
  Transmission Date: 20070707
  Serious: Yes (Hospitalization)
  Sender: FDA-Public Use
  Company Number: None

PATIENT
  Sex: Male
  Weight: 97 kg

DRUGS (4)
  1. BEVACIZUMAB 10MG/KG [Suspect]
     Indication: RENAL CELL CARCINOMA STAGE UNSPECIFIED
     Dosage: 10MG/KG IV Q OTHER WK.
     Dates: start: 20050808, end: 20061030
  2. ASPIRIN [Concomitant]
  3. PLAVIX [Concomitant]
  4. LISINOPRIL [Concomitant]

REACTIONS (6)
  - CEREBRAL HAEMORRHAGE [None]
  - CORONARY ARTERIAL STENT INSERTION [None]
  - CREATINE PHOSPHOKINASE DECREASED [None]
  - METASTASES TO CENTRAL NERVOUS SYSTEM [None]
  - SINUS BRADYCARDIA [None]
  - UNRESPONSIVE TO STIMULI [None]
